FAERS Safety Report 13384661 (Version 1)
Quarter: 2017Q1

REPORT INFORMATION
  Report Type: Spontaneous
  Country: US (occurrence: US)
  Receive Date: 20170329
  Receipt Date: 20170329
  Transmission Date: 20170429
  Serious: Yes (Other)
  Sender: FDA-Public Use
  Company Number: None

PATIENT
  Age: 52 Year
  Sex: Female
  Weight: 75.6 kg

DRUGS (3)
  1. PREMARIN CREAM [Concomitant]
  2. PREMARIN PILLS [Concomitant]
  3. OSELTAMIVIR PHOSPHATE. [Suspect]
     Active Substance: OSELTAMIVIR PHOSPHATE
     Indication: INFLUENZA
     Dosage: ?          QUANTITY:1 CAPSULE(S);?
     Route: 048
     Dates: start: 20170320, end: 20170321

REACTIONS (3)
  - Dizziness [None]
  - Abdominal pain [None]
  - Syncope [None]

NARRATIVE: CASE EVENT DATE: 20170321
